FAERS Safety Report 9011589 (Version 1)
Quarter: 2013Q1

REPORT INFORMATION
  Report Type: Spontaneous
  Country: BE (occurrence: BE)
  Receive Date: 20130108
  Receipt Date: 20130108
  Transmission Date: 20140127
  Serious: Yes (Hospitalization)
  Sender: FDA-Public Use
  Company Number: BE-B.I. PHARMACEUTICALS,INC./RIDGEFIELD-2013-BL-00006BL

PATIENT
  Sex: 0

DRUGS (5)
  1. PRADAXA [Suspect]
     Indication: ATRIAL FIBRILLATION
     Dosage: 220 NR
     Route: 048
     Dates: start: 201205, end: 201209
  2. SEROXAT [Concomitant]
  3. TRITACE [Concomitant]
  4. BURINEX [Concomitant]
  5. BISOPROLOL [Concomitant]

REACTIONS (4)
  - Renal failure acute [Recovered/Resolved]
  - Bradycardia [Recovered/Resolved]
  - Hypoglycaemia [Recovered/Resolved]
  - Somnolence [Recovered/Resolved]
